FAERS Safety Report 13912107 (Version 1)
Quarter: 2017Q3

REPORT INFORMATION
  Report Type: Not Available
  Country: US (occurrence: US)
  Receive Date: 20170828
  Receipt Date: 20170828
  Transmission Date: 20171127
  Serious: Yes (Hospitalization)
  Sender: FDA-Public Use
  Company Number: US-ANIPHARMA-2017-US-010083

PATIENT
  Age: 10 Month
  Sex: Female

DRUGS (1)
  1. OXYCODONE (NON-SPECIFIC) [Suspect]
     Active Substance: OXYCODONE
     Route: 048

REACTIONS (5)
  - Accidental exposure to product [Unknown]
  - Brain herniation [Unknown]
  - Respiratory failure [Unknown]
  - Brain oedema [Unknown]
  - Hydrocephalus [Unknown]
